FAERS Safety Report 8994665 (Version 1)
Quarter: 2012Q4

REPORT INFORMATION
  Report Type: Spontaneous
  Country: US (occurrence: None)
  Receive Date: 20121228
  Receipt Date: 20121228
  Transmission Date: 20130627
  Serious: Yes (Other)
  Sender: FDA-Public Use
  Company Number: None

PATIENT
  Age: 54 Year
  Sex: Male
  Weight: 72.58 kg

DRUGS (1)
  1. ALPRAZOLAM 0.25 MG EITHER GREENSTONE OR TEVA I THINK [Suspect]
     Indication: ANXIETY
     Dates: start: 20110523, end: 20121130

REACTIONS (1)
  - Tinnitus [None]
